FAERS Safety Report 18442758 (Version 1)
Quarter: 2020Q4

REPORT INFORMATION
  Report Type: Spontaneous
  Country: GB (occurrence: GB)
  Receive Date: 20201029
  Receipt Date: 20201029
  Transmission Date: 20210114
  Serious: Yes (Other)
  Sender: FDA-Public Use
  Company Number: GB-PERRIGO-20GB014935

PATIENT

DRUGS (11)
  1. PREDNISOLONE. [Concomitant]
     Active Substance: PREDNISOLONE
     Dosage: EVERY MORNING
     Dates: start: 20200928
  2. CLENIL MODULITE [Concomitant]
     Active Substance: BECLOMETHASONE DIPROPIONATE
     Dosage: 4 DF, QD
     Route: 055
     Dates: start: 20160128
  3. DIPROBASE                          /01210201/ [Concomitant]
     Dosage: APPLY
     Dates: start: 20180216
  4. DERMOL                             /01330701/ [Concomitant]
     Dosage: AS DIRECTED
     Dates: start: 20180216
  5. NAZOFAN [Concomitant]
     Dosage: 2 SPRAY INTO EACH NOSTRIL
     Route: 045
     Dates: start: 20140624
  6. IBUPROFEN. [Suspect]
     Active Substance: IBUPROFEN
     Indication: PRODUCT USED FOR UNKNOWN INDICATION
     Route: 065
     Dates: start: 20200928
  7. SALBUTAMOL [Concomitant]
     Active Substance: ALBUTEROL
     Dosage: 2 DF, PRN
     Route: 055
     Dates: start: 20200117
  8. EPIPEN [Concomitant]
     Active Substance: EPINEPHRINE
     Dosage: IMMEDIATELY  WHEN REQUIRED
     Dates: start: 20190806
  9. FEXOFENADINE [Concomitant]
     Active Substance: FEXOFENADINE HYDROCHLORIDE
     Dosage: 1 DF, QD
     Dates: start: 20180911
  10. FUCIBET [Concomitant]
     Dosage: APPLY THINLY TWICE DAILY, NEVER TO...
     Dates: start: 20121220
  11. BETNOVATE C [Concomitant]
     Indication: SKIN DISORDER
     Dosage: USE SPARINGLY ONLY WHEN SKIN BAD
     Dates: start: 20140624

REACTIONS (1)
  - Face oedema [Recovering/Resolving]

NARRATIVE: CASE EVENT DATE: 20200928
